FAERS Safety Report 11354531 (Version 1)
Quarter: 2015Q3

REPORT INFORMATION
  Report Type: Spontaneous
  Country: US (occurrence: US)
  Receive Date: 20150807
  Receipt Date: 20150807
  Transmission Date: 20151125
  Serious: No
  Sender: FDA-Public Use
  Company Number: US-JNJFOC-20141003698

PATIENT
  Age: 45 Year
  Sex: Female
  Weight: 88.45 kg

DRUGS (8)
  1. SIMVASTATIN. [Concomitant]
     Active Substance: SIMVASTATIN
     Indication: BLOOD CHOLESTEROL INCREASED
     Route: 065
  2. LISINOPRIL. [Concomitant]
     Active Substance: LISINOPRIL
     Indication: HYPERTENSION
     Route: 065
  3. MENS ROGAINE EXTRA STRENGTH [Suspect]
     Active Substance: MINOXIDIL
     Indication: ALOPECIA
     Dosage: CAPFUL
     Route: 061
  4. MENS ROGAINE EXTRA STRENGTH [Suspect]
     Active Substance: MINOXIDIL
     Route: 061
  5. MENS ROGAINE EXTRA STRENGTH [Suspect]
     Active Substance: MINOXIDIL
     Route: 061
  6. HAIR NUTRITION [Concomitant]
     Indication: DIHYDROTESTOSTERONE LEVEL
     Route: 065
  7. FLUOXETINE [Concomitant]
     Active Substance: FLUOXETINE\FLUOXETINE HYDROCHLORIDE
     Indication: DEPRESSION
     Route: 065
  8. MENS ROGAINE EXTRA STRENGTH [Suspect]
     Active Substance: MINOXIDIL
     Indication: ALOPECIA
     Dosage: CAPFUL
     Route: 061

REACTIONS (3)
  - Inappropriate schedule of drug administration [Unknown]
  - Drug ineffective [Not Recovered/Not Resolved]
  - Wrong patient received medication [Unknown]
